FAERS Safety Report 8447185-8 (Version None)
Quarter: 2012Q2

REPORT INFORMATION
  Report Type: 
  Country: None (occurrence: None)
  Receive Date: 20120619
  Receipt Date: 20120614
  Transmission Date: 20120825
  Serious: No
  Sender: FDA-Public Use
  Company Number: US-PFIZER INC-2012143932

PATIENT
  Sex: Male

DRUGS (3)
  1. LYRICA [Suspect]
     Dosage: HIGH DOSES
     Dates: start: 20100101
  2. VICODIN [Suspect]
     Dosage: HIGH DOSES
     Dates: start: 20100101, end: 20100101
  3. CELEBREX [Suspect]
     Dosage: HIGH DOSES
     Dates: start: 20100101

REACTIONS (3)
  - MOBILITY DECREASED [None]
  - PAIN [None]
  - FEELING ABNORMAL [None]
